FAERS Safety Report 6298905-2 (Version None)
Quarter: 2009Q3

REPORT INFORMATION
  Report Type: 
  Country: None (occurrence: None)
  Receive Date: 20090806
  Receipt Date: 20090804
  Transmission Date: 20100115
  Serious: Yes (Other)
  Sender: FDA-Public Use
  Company Number: AU-BAYER-200927139GPV

PATIENT
  Age: 57 Year
  Sex: Female

DRUGS (3)
  1. BETAFERON [Suspect]
     Indication: MULTIPLE SCLEROSIS
     Route: 058
  2. DITROPAN [Concomitant]
     Route: 048
  3. PLAVIX [Concomitant]
     Indication: ANTICOAGULANT THERAPY
     Dosage: TOTAL DAILY DOSE: 75 MG
     Route: 048

REACTIONS (4)
  - JOINT STIFFNESS [None]
  - MUSCLE SPASTICITY [None]
  - NAUSEA [None]
  - PAIN [None]
